FAERS Safety Report 19951324 (Version 2)
Quarter: 2021Q4

REPORT INFORMATION
  Report Type: Spontaneous
  Country: US (occurrence: US)
  Receive Date: 20211014
  Receipt Date: 20211014
  Transmission Date: 20220303
  Serious: Yes (Hospitalization, Other)
  Sender: FDA-Public Use
  Company Number: US-VISTAPHARM, INC.-VER202109-001967

PATIENT
  Age: 22 Year
  Sex: Male

DRUGS (4)
  1. ACETAMINOPHEN\HYDROCODONE [Suspect]
     Active Substance: ACETAMINOPHEN\HYDROCODONE
     Indication: Product used for unknown indication
     Dosage: 2.5 G (5 TABLETS OF 500 MG)
     Route: 048
  2. ELEXACAFTOR [Concomitant]
     Active Substance: ELEXACAFTOR
     Indication: Cystic fibrosis
     Dosage: UNKNOWN
     Route: 065
  3. TEZACAFTOR [Concomitant]
     Active Substance: TEZACAFTOR
     Indication: Cystic fibrosis
     Dosage: UNKNOWN
     Route: 065
  4. IVACAFTOR [Concomitant]
     Active Substance: IVACAFTOR
     Indication: Cystic fibrosis
     Dosage: UNKNOWN
     Route: 065

REACTIONS (5)
  - Acute kidney injury [Unknown]
  - Hepatic encephalopathy [Unknown]
  - Lactic acidosis [Unknown]
  - Acute hepatic failure [Unknown]
  - Intentional overdose [Unknown]
